FAERS Safety Report 20764328 (Version 1)
Quarter: 2022Q2

REPORT INFORMATION
  Report Type: Spontaneous
  Country: TR (occurrence: TR)
  Receive Date: 20220428
  Receipt Date: 20220428
  Transmission Date: 20220721
  Serious: Yes (Other)
  Sender: FDA-Public Use
  Company Number: TR-AMGEN-TURSP2022070839

PATIENT
  Age: 6 Year
  Sex: Male

DRUGS (9)
  1. CINACALCET HYDROCHLORIDE [Suspect]
     Active Substance: CINACALCET HYDROCHLORIDE
     Indication: Hypercalcaemia
     Dosage: 20 MILLIGRAM, QD
     Route: 065
  2. CINACALCET HYDROCHLORIDE [Suspect]
     Active Substance: CINACALCET HYDROCHLORIDE
     Indication: Hyperparathyroidism
     Dosage: 30 MILLIGRAM, QD
     Route: 065
  3. CINACALCET HYDROCHLORIDE [Suspect]
     Active Substance: CINACALCET HYDROCHLORIDE
     Indication: Off label use
     Dosage: 40 MILLIGRAM, QD
     Route: 065
  4. CINACALCET HYDROCHLORIDE [Suspect]
     Active Substance: CINACALCET HYDROCHLORIDE
     Dosage: 70 MILLIGRAM, QD
     Route: 065
  5. CINACALCET HYDROCHLORIDE [Suspect]
     Active Substance: CINACALCET HYDROCHLORIDE
     Dosage: 80 MILLIGRAM/SQ. METER, QD
     Route: 065
  6. CHOLECALCIFEROL [Concomitant]
     Active Substance: CHOLECALCIFEROL
     Dosage: 400 UI, QD
  7. CALCIUM [Concomitant]
     Active Substance: CALCIUM
     Dosage: 250 MILLIGRAM, QD
  8. CALCIUM [Concomitant]
     Active Substance: CALCIUM
     Dosage: 75 MILLIGRAM/KILOGRAM, QD
  9. CALCITRIOL [Concomitant]
     Active Substance: CALCITRIOL
     Dosage: 0.05 MICROGRAM/KILOGRAM, QD

REACTIONS (5)
  - Nephrocalcinosis [Unknown]
  - Hypercalcaemia [Recovered/Resolved]
  - Therapy partial responder [Unknown]
  - Hypocalcaemia [Recovered/Resolved]
  - Off label use [Unknown]
